FAERS Safety Report 20189653 (Version 1)
Quarter: 2021Q4

REPORT INFORMATION
  Report Type: Spontaneous
  Country: FR (occurrence: FR)
  Receive Date: 20211215
  Receipt Date: 20211215
  Transmission Date: 20220304
  Serious: Yes (Death)
  Sender: FDA-Public Use
  Company Number: FR-ELI_LILLY_AND_COMPANY-FR202112006239

PATIENT
  Sex: Female

DRUGS (2)
  1. BAMLANIVIMAB [Suspect]
     Active Substance: BAMLANIVIMAB
     Indication: COVID-19
     Dosage: UNK, SINGLE
     Route: 042
     Dates: start: 20210312, end: 20210312
  2. RITUXIMAB [Concomitant]
     Active Substance: RITUXIMAB
     Indication: Immunosuppression
     Dosage: UNK, UNKNOWN
     Route: 065

REACTIONS (2)
  - Respiratory distress [Fatal]
  - COVID-19 [Fatal]
